FAERS Safety Report 15566409 (Version 1)
Quarter: 2018Q4

REPORT INFORMATION
  Report Type: Spontaneous
  Country: BE (occurrence: BE)
  Receive Date: 20181030
  Receipt Date: 20181030
  Transmission Date: 20190205
  Serious: Yes (Other)
  Sender: FDA-Public Use
  Company Number: BE-PENTEC HEALTH-2018PEN00055

PATIENT
  Age: 28 Year
  Sex: Female

DRUGS (2)
  1. BUPIVACAINE HYDROCHLORIDE. [Suspect]
     Active Substance: BUPIVACAINE HYDROCHLORIDE
     Indication: EPIDURAL ANAESTHESIA
     Dosage: 2 ML (0.5%), ONCE
     Route: 037
  2. SUFENTANIL [Concomitant]
     Active Substance: SUFENTANIL
     Dosage: 2.5 ?G, ONCE

REACTIONS (3)
  - Cauda equina syndrome [Recovering/Resolving]
  - Radiculopathy [Recovering/Resolving]
  - Exposure during pregnancy [Recovered/Resolved]
